FAERS Safety Report 13688430 (Version 1)
Quarter: 2017Q2

REPORT INFORMATION
  Report Type: Spontaneous
  Country: CM (occurrence: CM)
  Receive Date: 20170626
  Receipt Date: 20170626
  Transmission Date: 20170830
  Serious: Yes (Hospitalization, Other)
  Sender: FDA-Public Use
  Company Number: CM-LUPIN PHARMACEUTICALS INC.-2017-03282

PATIENT
  Age: 25 Year
  Sex: Female

DRUGS (1)
  1. MISOPROSTOL. [Suspect]
     Active Substance: MISOPROSTOL
     Indication: EVACUATION OF RETAINED PRODUCTS OF CONCEPTION
     Dosage: UNK
     Route: 065

REACTIONS (4)
  - Uterine rupture [Recovering/Resolving]
  - Arterial rupture [Recovering/Resolving]
  - Peritoneal haemorrhage [Recovering/Resolving]
  - Hypovolaemic shock [Recovering/Resolving]
